FAERS Safety Report 12060669 (Version 1)
Quarter: 2016Q1

REPORT INFORMATION
  Report Type: Spontaneous
  Country: US (occurrence: US)
  Receive Date: 20160210
  Receipt Date: 20160210
  Transmission Date: 20160526
  Serious: Yes (Other)
  Sender: FDA-Public Use
  Company Number: US-ROXANE LABORATORIES, INC.-2016-RO-00215RO

PATIENT
  Sex: Male
  Weight: 73 kg

DRUGS (4)
  1. KLONOPIN [Concomitant]
     Active Substance: CLONAZEPAM
     Dosage: 1 MG
     Route: 065
  2. OMEPRAZOLE. [Concomitant]
     Active Substance: OMEPRAZOLE
     Dosage: 40 MG
     Route: 065
  3. PREDNISONE TABLETS USP, 5MG [Suspect]
     Active Substance: PREDNISONE
     Indication: HYPOAESTHESIA
     Route: 065
  4. RESTORIL [Concomitant]
     Active Substance: TEMAZEPAM
     Dosage: 30 MG
     Route: 065
     Dates: start: 2002

REACTIONS (1)
  - Seizure [Recovered/Resolved]
